FAERS Safety Report 21258613 (Version 1)
Quarter: 2022Q3

REPORT INFORMATION
  Report Type: Spontaneous
  Country: US (occurrence: None)
  Receive Date: 20220825
  Receipt Date: 20220825
  Transmission Date: 20221027
  Serious: Yes (Hospitalization)
  Sender: FDA-Public Use
  Company Number: None

PATIENT
  Age: 72 Year
  Sex: Female
  Weight: 60 kg

DRUGS (1)
  1. BEBTELOVIMAB [Suspect]
     Active Substance: BEBTELOVIMAB
     Indication: COVID-19
     Dosage: FREQUENCY : ONCE;?
     Route: 042
     Dates: start: 20220823, end: 20220823

REACTIONS (7)
  - Presyncope [None]
  - Dyspnoea [None]
  - Bradycardia [None]
  - Lip swelling [None]
  - Flushing [None]
  - Resuscitation [None]
  - Atrial fibrillation [None]

NARRATIVE: CASE EVENT DATE: 20220823
